FAERS Safety Report 5199799-9 (Version None)
Quarter: 2006Q4

REPORT INFORMATION
  Report Type: 
  Country: None (occurrence: None)
  Receive Date: 20061229
  Receipt Date: 20061218
  Transmission Date: 20070319
  Serious: Yes (Other)
  Sender: FDA-Public Use
  Company Number: 2006SP008661

PATIENT
  Age: 2 Year
  Sex: Female

DRUGS (3)
  1. DESLORATADINE [Suspect]
     Dates: start: 20061107
  2. MOTILIUM [Suspect]
     Dates: end: 20061214
  3. ZYMADUO [Concomitant]

REACTIONS (4)
  - BALANCE DISORDER [None]
  - GAIT DISTURBANCE [None]
  - INTERMITTENT CLAUDICATION [None]
  - PAIN IN EXTREMITY [None]
